FAERS Safety Report 6612788-X (Version None)
Quarter: 2010Q1

REPORT INFORMATION
  Report Type: 
  Country: None (occurrence: None)
  Receive Date: 20100303
  Receipt Date: 20100217
  Transmission Date: 20100710
  Serious: Yes (Other)
  Sender: FDA-Public Use
  Company Number: ES-ELI_LILLY_AND_COMPANY-ES200910005414

PATIENT
  Age: 69 Year
  Sex: Female

DRUGS (6)
  1. FORTEO [Suspect]
     Indication: ARTHRALGIA
     Dosage: UNK, UNKNOWN
     Dates: start: 20090617, end: 20090623
  2. METFORMIN HCL [Concomitant]
     Dosage: UNK, UNKNOWN
  3. CO DIOVAN [Concomitant]
     Dosage: UNK, UNKNOWN
  4. INDURGAN [Concomitant]
     Dosage: UNK, UNKNOWN
  5. CARDURA [Concomitant]
     Dosage: UNK, UNKNOWN
  6. MYOLASTAN [Concomitant]
     Dosage: UNK, UNKNOWN

REACTIONS (3)
  - HYPERCALCAEMIA [None]
  - HYPOKINESIA [None]
  - OFF LABEL USE [None]
